FAERS Safety Report 23440279 (Version 3)
Quarter: 2024Q1

REPORT INFORMATION
  Report Type: Spontaneous
  Country: TR (occurrence: TR)
  Receive Date: 20240124
  Receipt Date: 20240228
  Transmission Date: 20240410
  Serious: Yes (Hospitalization)
  Sender: FDA-Public Use
  Company Number: TR-BIOGEN-2024BI01246605

PATIENT
  Age: 0 Year
  Sex: Male

DRUGS (2)
  1. SPINRAZA [Suspect]
     Active Substance: NUSINERSEN
     Indication: Spinal muscular atrophy
     Route: 050
     Dates: start: 20240114
  2. SPINRAZA [Suspect]
     Active Substance: NUSINERSEN
     Dosage: 2.4 MG/ML
     Route: 050
     Dates: start: 20231228

REACTIONS (2)
  - Restrictive pulmonary disease [Not Recovered/Not Resolved]
  - Pneumonia [Unknown]

NARRATIVE: CASE EVENT DATE: 20231229
